FAERS Safety Report 13088581 (Version 1)
Quarter: 2016Q4

REPORT INFORMATION
  Report Type: Spontaneous
  Country: US (occurrence: US)
  Receive Date: 20161230
  Receipt Date: 20161230
  Transmission Date: 20170207
  Serious: Yes (Death)
  Sender: FDA-Public Use
  Company Number: None

PATIENT
  Age: 70 Year
  Sex: Female
  Weight: 110.25 kg

DRUGS (1)
  1. PACLITAXEL. [Suspect]
     Active Substance: PACLITAXEL
     Indication: LUNG NEOPLASM MALIGNANT
     Dosage: ?          OTHER FREQUENCY:EVERY WEEK;?
     Route: 041
     Dates: start: 20161209, end: 20161209

REACTIONS (8)
  - Cyanosis [None]
  - Endotracheal intubation complication [None]
  - Pulse absent [None]
  - Blood pressure immeasurable [None]
  - Cough [None]
  - Dyspnoea [None]
  - Pallor [None]
  - Depressed level of consciousness [None]

NARRATIVE: CASE EVENT DATE: 20161209
